FAERS Safety Report 11463785 (Version 1)
Quarter: 2015Q3

REPORT INFORMATION
  Report Type: Spontaneous
  Country: US (occurrence: US)
  Receive Date: 20150831
  Receipt Date: 20150831
  Transmission Date: 20151125
  Serious: No
  Sender: FDA-Public Use
  Company Number: US-ELI_LILLY_AND_COMPANY-US201104008219

PATIENT
  Sex: Female

DRUGS (1)
  1. CYMBALTA [Suspect]
     Active Substance: DULOXETINE HYDROCHLORIDE
     Indication: NEUROPATHY PERIPHERAL
     Dosage: 20 MG, QD

REACTIONS (6)
  - Euphoric mood [Unknown]
  - Feeling abnormal [Unknown]
  - Drug effect increased [Recovered/Resolved]
  - Off label use [Recovered/Resolved]
  - Headache [Unknown]
  - Intentional product misuse [Not Recovered/Not Resolved]
